FAERS Safety Report 11031561 (Version 2)
Quarter: 2015Q2

REPORT INFORMATION
  Report Type: Spontaneous
  Country: US (occurrence: US)
  Receive Date: 20150415
  Receipt Date: 20150511
  Transmission Date: 20150821
  Serious: Yes (Hospitalization)
  Sender: FDA-Public Use
  Company Number: US-ELI_LILLY_AND_COMPANY-US201504001399

PATIENT
  Age: 46 Year
  Sex: Female
  Weight: 119 kg

DRUGS (14)
  1. LANTUS [Suspect]
     Active Substance: INSULIN GLARGINE
     Indication: TYPE 2 DIABETES MELLITUS
     Dosage: 75 U, EACH MORNING
     Route: 058
     Dates: start: 2009
  2. LANTUS [Suspect]
     Active Substance: INSULIN GLARGINE
     Dosage: 65 U, EACH EVENING
     Route: 058
     Dates: start: 2009
  3. NORCO [Concomitant]
     Active Substance: ACETAMINOPHEN\HYDROCODONE BITARTRATE
     Dosage: UNK
  4. COUMADIN [Concomitant]
     Active Substance: WARFARIN SODIUM
     Dosage: 15 MG, QD
     Dates: start: 2003
  5. HUMALOG [Suspect]
     Active Substance: INSULIN LISPRO
     Dosage: 75 U, QD
     Route: 058
     Dates: start: 2009
  6. LYRICA [Concomitant]
     Active Substance: PREGABALIN
     Indication: NEUROPATHY PERIPHERAL
     Dosage: UNK, BID
     Route: 048
     Dates: start: 2012
  7. CRESTOR [Concomitant]
     Active Substance: ROSUVASTATIN CALCIUM
  8. METFORMIN [Suspect]
     Active Substance: METFORMIN HYDROCHLORIDE
     Indication: TYPE 2 DIABETES MELLITUS
     Route: 065
  9. LASIX [Concomitant]
     Active Substance: FUROSEMIDE
     Indication: LOCAL SWELLING
     Dosage: UNK
     Dates: start: 2003
  10. GLIPIZIDE. [Concomitant]
     Active Substance: GLIPIZIDE
     Dosage: UNK
     Dates: start: 2012
  11. PROVENTIL                          /00139501/ [Concomitant]
     Dosage: UNK
  12. FLOVENT [Concomitant]
     Active Substance: FLUTICASONE PROPIONATE
     Dosage: UNK
  13. HUMALOG [Suspect]
     Active Substance: INSULIN LISPRO
     Indication: TYPE 2 DIABETES MELLITUS
     Dosage: 75 U, EACH MORNING
     Route: 058
     Dates: start: 2009
  14. HUMALOG [Suspect]
     Active Substance: INSULIN LISPRO
     Dosage: UNK UNK, PRN
     Route: 058
     Dates: start: 2009

REACTIONS (8)
  - Blood glucose increased [Recovering/Resolving]
  - Night sweats [Recovered/Resolved]
  - Vomiting [Unknown]
  - Cataract [Not Recovered/Not Resolved]
  - Rash [Unknown]
  - Weight increased [Recovering/Resolving]
  - Abnormal dreams [Recovered/Resolved]
  - Drug dose omission [Recovered/Resolved]

NARRATIVE: CASE EVENT DATE: 200910
